FAERS Safety Report 19478629 (Version 1)
Quarter: 2021Q2

REPORT INFORMATION
  Report Type: Spontaneous
  Country: CN (occurrence: CN)
  Receive Date: 20210630
  Receipt Date: 20210630
  Transmission Date: 20210717
  Serious: Yes (Hospitalization, Other)
  Sender: FDA-Public Use
  Company Number: CN-ASTRAZENECA-2021A548967

PATIENT
  Age: 56 Year
  Sex: Male

DRUGS (1)
  1. GEFITINIB. [Suspect]
     Active Substance: GEFITINIB
     Dosage: TOOK 500MG / 8H IN THE FIRST 3 DAYS AND 250MG / 8H IN THE SECOND 3 DAYS, A TOTAL OF 6750 MG.
     Route: 048
     Dates: start: 20180522

REACTIONS (6)
  - Rash pruritic [Unknown]
  - Acute lung injury [Recovering/Resolving]
  - Product use issue [Unknown]
  - Diarrhoea [Unknown]
  - Accidental overdose [Unknown]
  - Respiratory failure [Recovering/Resolving]

NARRATIVE: CASE EVENT DATE: 20180529
